FAERS Safety Report 8938190 (Version 2)
Quarter: 2012Q4

REPORT INFORMATION
  Report Type: Report from Study
  Country: JP (occurrence: JP)
  Receive Date: 20121130
  Receipt Date: 20121231
  Transmission Date: 20130627
  Serious: Yes (Disabling)
  Sender: FDA-Public Use
  Company Number: JP-JNJFOC-20121112836

PATIENT
  Age: 63 Year
  Sex: Male
  Weight: 59 kg

DRUGS (9)
  1. INVEGA [Suspect]
     Indication: SCHIZOPHRENIA, DISORGANISED TYPE
     Route: 048
     Dates: start: 20110613, end: 20110624
  2. INVEGA [Suspect]
     Indication: SCHIZOPHRENIA, DISORGANISED TYPE
     Route: 048
     Dates: start: 20110625, end: 20120103
  3. INVEGA [Suspect]
     Indication: SCHIZOPHRENIA, DISORGANISED TYPE
     Route: 048
     Dates: start: 20120104, end: 20120110
  4. HALOPERIDOL [Suspect]
     Indication: SCHIZOPHRENIA, DISORGANISED TYPE
     Route: 048
  5. RISPERIDONE [Suspect]
     Indication: SCHIZOPHRENIA, DISORGANISED TYPE
     Route: 048
  6. ZOTEPINE [Suspect]
     Indication: SCHIZOPHRENIA, DISORGANISED TYPE
     Route: 048
  7. LEVOMEPROMAZINE MALEATE [Suspect]
     Indication: SCHIZOPHRENIA, DISORGANISED TYPE
     Route: 048
  8. SODIUM VALPROATE [Concomitant]
     Indication: SCHIZOPHRENIA, DISORGANISED TYPE
     Route: 048
  9. CARBAMAZEPINE [Concomitant]
     Indication: SCHIZOPHRENIA, DISORGANISED TYPE
     Route: 048

REACTIONS (1)
  - Femur fracture [Recovered/Resolved with Sequelae]
